FAERS Safety Report 6059547-7 (Version None)
Quarter: 2009Q1

REPORT INFORMATION
  Report Type: 
  Country: None (occurrence: None)
  Receive Date: 20090127
  Receipt Date: 20090127
  Transmission Date: 20090719
  Serious: Yes (Hospitalization)
  Sender: FDA-Public Use
  Company Number: None

PATIENT
  Age: 37 Year
  Sex: Female
  Weight: 67.1324 kg

DRUGS (1)
  1. CHANTIX [Suspect]
     Indication: SMOKING CESSATION THERAPY
     Dosage: 1MG 2 PILLS A DAY PO
     Route: 048
     Dates: start: 20081219, end: 20081226

REACTIONS (5)
  - HALLUCINATION [None]
  - MOOD SWINGS [None]
  - PARANOIA [None]
  - PHOBIA [None]
  - SUICIDE ATTEMPT [None]
